FAERS Safety Report 12780412 (Version 2)
Quarter: 2016Q4

REPORT INFORMATION
  Report Type: Spontaneous
  Country: GB (occurrence: GB)
  Receive Date: 20160926
  Receipt Date: 20161101
  Transmission Date: 20170207
  Serious: Yes (Other)
  Sender: FDA-Public Use
  Company Number: GB-SA-2016SA170383

PATIENT
  Age: 52 Year
  Sex: Male
  Weight: 94.5 kg

DRUGS (9)
  1. SOLOSTAR [Concomitant]
     Active Substance: DEVICE
     Indication: DIABETES MELLITUS
     Dates: start: 20130827, end: 20160822
  2. DAPAGLIFLOZIN [Concomitant]
     Active Substance: DAPAGLIFLOZIN
     Indication: DIABETES MELLITUS
     Route: 048
     Dates: start: 201603
  3. FENOFIBRATE. [Concomitant]
     Active Substance: FENOFIBRATE
     Indication: MYOCARDIAL ISCHAEMIA
     Route: 048
     Dates: start: 201606
  4. PREDNISOLONE. [Concomitant]
     Active Substance: PREDNISOLONE
  5. APIDRA SOLOSTAR [Suspect]
     Active Substance: INSULIN GLULISINE
     Indication: DIABETES MELLITUS
     Dosage: DOSAGE- 12 IU IN MORNING, 12 IU AT 1 PM, 30 IU AT 5 PM?54 IU/VARIED
     Route: 058
     Dates: start: 20130827, end: 20160822
  6. ASPIRIN. [Concomitant]
     Active Substance: ASPIRIN
     Indication: MYOCARDIAL ISCHAEMIA
     Route: 048
     Dates: start: 201604
  7. OMEPRAZOLE. [Concomitant]
     Active Substance: OMEPRAZOLE
     Indication: GASTRITIS
     Route: 048
     Dates: start: 201603
  8. ISOPHANE INSULIN [Concomitant]
     Active Substance: INSULIN NOS
  9. SILDENAFIL. [Concomitant]
     Active Substance: SILDENAFIL
     Indication: ERECTILE DYSFUNCTION
     Route: 048
     Dates: start: 201604

REACTIONS (16)
  - Ear disorder [Recovered/Resolved]
  - Pruritus [Recovered/Resolved]
  - Nasal discomfort [Recovered/Resolved]
  - Dyspnoea [Recovered/Resolved]
  - Dyspnoea [Recovered/Resolved]
  - Memory impairment [Unknown]
  - Sinusitis [Recovered/Resolved]
  - Cough [Recovered/Resolved]
  - Ear discomfort [Recovered/Resolved]
  - Ear pain [Recovered/Resolved]
  - Confusional state [Recovered/Resolved]
  - Asthma [Recovered/Resolved]
  - Nasal disorder [Recovered/Resolved]
  - Dysphagia [Recovered/Resolved]
  - Nasal congestion [Recovered/Resolved]
  - Dysgeusia [Recovered/Resolved]

NARRATIVE: CASE EVENT DATE: 2013
